FAERS Safety Report 12107219 (Version 1)
Quarter: 2016Q1

REPORT INFORMATION
  Report Type: Spontaneous
  Country: US (occurrence: US)
  Receive Date: 20160223
  Receipt Date: 20160223
  Transmission Date: 20160526
  Serious: No
  Sender: FDA-Public Use
  Company Number: US-AMGEN-USASP2016019453

PATIENT
  Age: 64 Year
  Sex: Female

DRUGS (1)
  1. ENBREL [Suspect]
     Active Substance: ETANERCEPT
     Indication: RHEUMATOID ARTHRITIS
     Dosage: 50 MG, QWK
     Route: 058

REACTIONS (5)
  - Post herpetic neuralgia [Not Recovered/Not Resolved]
  - Skin irritation [Unknown]
  - Chest pain [Unknown]
  - Pruritus [Unknown]
  - Herpes zoster [Unknown]

NARRATIVE: CASE EVENT DATE: 20160202
